FAERS Safety Report 9586194 (Version 1)
Quarter: 2013Q4

REPORT INFORMATION
  Report Type: Spontaneous
  Country: US (occurrence: US)
  Receive Date: 20131003
  Receipt Date: 20131003
  Transmission Date: 20140711
  Serious: Yes (Hospitalization)
  Sender: FDA-Public Use
  Company Number: US-SUN PHARMACEUTICAL INDUSTRIES LTD-2013SUN04775

PATIENT
  Age: 55 Year
  Sex: Male

DRUGS (3)
  1. CARBIDOPA + LEVODOPA [Suspect]
     Indication: PARKINSON^S DISEASE
     Dosage: 25-250 MG, 1.5 TABLETS EVERY 2 H WHILE AWAKE
     Route: 065
  2. ROPINIROLE [Concomitant]
     Indication: MUSCLE RIGIDITY
     Dosage: 2 MG, 1 TABLET EVERY 2 H WHILE AWAKE
  3. AMANTADINE [Concomitant]
     Indication: DYSKINESIA
     Dosage: 100 MG, 1 TABLET EVERY 5 H

REACTIONS (2)
  - Hip fracture [Recovering/Resolving]
  - Fall [None]
